FAERS Safety Report 15960726 (Version 2)
Quarter: 2019Q1

REPORT INFORMATION
  Report Type: Spontaneous
  Country: DE (occurrence: DE)
  Receive Date: 20190214
  Receipt Date: 20190214
  Transmission Date: 20190417
  Serious: Yes (Congenital Anomaly)
  Sender: FDA-Public Use
  Company Number: DE-HETERO CORPORATE-HET2019DE00145

PATIENT
  Age: 1 Day
  Sex: Female
  Weight: 2.4 kg

DRUGS (3)
  1. FOLS?URE [Concomitant]
     Indication: PROPHYLAXIS OF NEURAL TUBE DEFECT
     Dosage: UNK
     Route: 064
  2. ESCITALOPRAM [Suspect]
     Active Substance: ESCITALOPRAM OXALATE
     Indication: DEPRESSION
     Dosage: 10 MG, QD
     Route: 064
  3. SKINOREN [Concomitant]
     Active Substance: AZELAIC ACID
     Indication: ACNE
     Dosage: UNK
     Route: 064

REACTIONS (2)
  - Atrial septal defect [Not Recovered/Not Resolved]
  - Transposition of the great vessels [Not Recovered/Not Resolved]

NARRATIVE: CASE EVENT DATE: 20180416
